FAERS Safety Report 4462421-0 (Version None)
Quarter: 2004Q3

REPORT INFORMATION
  Report Type: 
  Country: None (occurrence: None)
  Receive Date: 20040924
  Receipt Date: 20040913
  Transmission Date: 20050211
  Serious: No
  Sender: FDA-Public Use
  Company Number: A04200400370

PATIENT
  Age: 67 Year
  Sex: Male

DRUGS (1)
  1. PLAVIX [Suspect]
     Indication: TRANSIENT ISCHAEMIC ATTACK
     Dosage: 75 MG OD
     Route: 048
     Dates: start: 19990101, end: 20020101

REACTIONS (4)
  - BONE MARROW DEPRESSION [None]
  - DUODENAL ULCER PERFORATION [None]
  - MYELODYSPLASTIC SYNDROME [None]
  - REFRACTORY ANAEMIA [None]
